FAERS Safety Report 6675372-8 (Version None)
Quarter: 2010Q2

REPORT INFORMATION
  Report Type: 
  Country: None (occurrence: None)
  Receive Date: 20100409
  Receipt Date: 20100305
  Transmission Date: 20101027
  Serious: No
  Sender: FDA-Public Use
  Company Number: A0848694A

PATIENT
  Age: 48 Year
  Sex: Female

DRUGS (5)
  1. TYKERB [Suspect]
     Indication: BREAST CANCER
     Route: 048
     Dates: start: 20100207, end: 20100227
  2. OXYCONTIN [Concomitant]
  3. LEXAPRO [Concomitant]
  4. KLONOPIN [Concomitant]
  5. RITALIN [Concomitant]

REACTIONS (5)
  - EPISTAXIS [None]
  - PARANASAL SINUS HYPERSECRETION [None]
  - RHINORRHOEA [None]
  - SWOLLEN TONGUE [None]
  - TONGUE BITING [None]
